FAERS Safety Report 11228621 (Version 2)
Quarter: 2016Q1

REPORT INFORMATION
  Report Type: Spontaneous
  Country: US (occurrence: US)
  Receive Date: 20150630
  Receipt Date: 20160126
  Transmission Date: 20160525
  Serious: Yes (Hospitalization, Other)
  Sender: FDA-Public Use
  Company Number: US-DSJP-DSU-2015-120134

PATIENT

DRUGS (3)
  1. BENICAR [Suspect]
     Active Substance: OLMESARTAN MEDOXOMIL
     Indication: HYPERTENSION
     Dosage: 20 MG, QD
     Route: 048
     Dates: start: 200807, end: 201402
  2. BENICAR [Suspect]
     Active Substance: OLMESARTAN MEDOXOMIL
     Dosage: UNK
     Dates: start: 2005
  3. BENICAR [Suspect]
     Active Substance: OLMESARTAN MEDOXOMIL
     Dosage: 40 MG, QD
     Route: 048
     Dates: start: 200807, end: 201402

REACTIONS (16)
  - Malabsorption [Unknown]
  - Anxiety [Unknown]
  - Dyspepsia [Recovering/Resolving]
  - Cholelithiasis [Recovered/Resolved]
  - Impaired gastric emptying [Unknown]
  - Large intestine polyp [Unknown]
  - Hepatic steatosis [Unknown]
  - Liver function test increased [Recovering/Resolving]
  - Hiatus hernia [Unknown]
  - Tremor [Unknown]
  - Cholecystitis chronic [Recovered/Resolved]
  - Decreased appetite [Unknown]
  - Depression [Unknown]
  - Gastrooesophageal reflux disease [Unknown]
  - Diverticulum [Unknown]
  - Acute kidney injury [Unknown]

NARRATIVE: CASE EVENT DATE: 200807
